FAERS Safety Report 7327335 (Version 2)
Quarter: 2019Q1

REPORT INFORMATION
  Report Type: Spontaneous
  Country: JP (occurrence: JP)
  Receive Date: 20100322
  Receipt Date: 20190225
  Transmission Date: 20190418
  Serious: Yes (Hospitalization, Other)
  Sender: FDA-Public Use
  Company Number: PHHY2010JP14651

PATIENT
  Age: 64 Year
  Sex: Male

DRUGS (1)
  1. GLIVEC [Suspect]
     Active Substance: IMATINIB MESYLATE
     Indication: GASTROINTESTINAL STROMAL TUMOUR
     Dosage: 400 MG, QD
     Route: 048

REACTIONS (11)
  - Malaise [Recovering/Resolving]
  - Gastrointestinal stromal tumour [Unknown]
  - Oedema peripheral [Recovering/Resolving]
  - Haemorrhage subcutaneous [Recovering/Resolving]
  - Anaemia [Recovering/Resolving]
  - Platelet count decreased [Recovering/Resolving]
  - Neoplasm recurrence [Unknown]
  - Tumour haemorrhage [Recovering/Resolving]
  - Dizziness exertional [Recovering/Resolving]
  - Prothrombin time ratio increased [Recovering/Resolving]
  - Disseminated intravascular coagulation [Recovering/Resolving]
